FAERS Safety Report 5414862-2 (Version None)
Quarter: 2007Q3

REPORT INFORMATION
  Report Type: 
  Country: None (occurrence: None)
  Receive Date: 20070815
  Receipt Date: 20070810
  Transmission Date: 20080115
  Serious: Yes (Other)
  Sender: FDA-Public Use
  Company Number: PHNU2007DE02809

PATIENT
  Age: 72 Year
  Sex: Male

DRUGS (9)
  1. ZOMETA [Suspect]
     Indication: METASTASES TO BONE
     Dosage: 4 MG, QD
     Route: 042
     Dates: start: 20040101
  2. CLINDAMYCIN HCL [Concomitant]
     Dosage: 300 MG, UNK
     Route: 065
  3. CEFUROXIME [Concomitant]
     Dosage: 500 MG, UNK
     Route: 065
  4. MORPHINE SULFATE [Concomitant]
     Route: 065
  5. BISOHEXAL [Concomitant]
     Route: 065
  6. ASPIRIN [Concomitant]
     Route: 065
  7. PANTOPRAZOLE SODIUM [Concomitant]
     Route: 065
  8. CELEBREX [Concomitant]
     Route: 065
  9. DYNACIL [Concomitant]
     Route: 065

REACTIONS (9)
  - ANTIBIOTIC PROPHYLAXIS [None]
  - EXCESSIVE GRANULATION TISSUE [None]
  - HISTOLOGY ABNORMAL [None]
  - ORAL SURGERY [None]
  - OSTEONECROSIS [None]
  - PAIN [None]
  - PURULENCE [None]
  - TOOTH EXTRACTION [None]
  - WOUND DEHISCENCE [None]
